FAERS Safety Report 7235691-3 (Version None)
Quarter: 2011Q1

REPORT INFORMATION
  Report Type: 
  Country: None (occurrence: None)
  Receive Date: 20110110
  Receipt Date: 20101228
  Transmission Date: 20110831
  Serious: Yes (Other)
  Sender: FDA-Public Use
  Company Number: CIP10003202

PATIENT
  Age: 54 Year
  Sex: Female

DRUGS (1)
  1. FURADANTIN [Suspect]
     Indication: CYSTITIS
     Dosage: 3 DOSAGES FORMS DAILY, ORAL
     Route: 048
     Dates: start: 20101125, end: 20101128

REACTIONS (8)
  - RESPIRATORY DISORDER [None]
  - VERTIGO [None]
  - PHOTOPHOBIA [None]
  - PALPITATIONS [None]
  - IMPAIRED WORK ABILITY [None]
  - MALAISE [None]
  - BLOOD PRESSURE INCREASED [None]
  - DRUG HYPERSENSITIVITY [None]
